FAERS Safety Report 5570167-0 (Version None)
Quarter: 2007Q4

REPORT INFORMATION
  Report Type: 
  Country: None (occurrence: None)
  Receive Date: 20071220
  Receipt Date: 20071210
  Transmission Date: 20080405
  Serious: Yes (Other)
  Sender: FDA-Public Use
  Company Number: US-PFIZER INC-2007105533

PATIENT

DRUGS (2)
  1. CHANTIX [Suspect]
  2. ALL OTHER THERAPEUTIC PRODUCTS [Concomitant]
     Indication: BIPOLAR DISORDER

REACTIONS (1)
  - BIPOLAR DISORDER [None]
